FAERS Safety Report 8544951-5 (Version None)
Quarter: 2012Q3

REPORT INFORMATION
  Report Type: 
  Country: None (occurrence: None)
  Receive Date: 20120727
  Receipt Date: 20120720
  Transmission Date: 20120928
  Serious: Yes (Other)
  Sender: FDA-Public Use
  Company Number: CA-JNJFOC-20120711742

PATIENT
  Sex: Male
  Weight: 98 kg

DRUGS (4)
  1. NAPROXEN [Concomitant]
     Route: 065
  2. REMICADE [Suspect]
     Indication: PSORIASIS
     Route: 042
     Dates: start: 20090911
  3. ALLOPURINOL [Concomitant]
     Route: 065
  4. COLCHICINE [Concomitant]
     Route: 065

REACTIONS (1)
  - GOUT [None]
